FAERS Safety Report 25865117 (Version 1)
Quarter: 2025Q3

REPORT INFORMATION
  Report Type: Spontaneous
  Country: EU (occurrence: EU)
  Receive Date: 20250930
  Receipt Date: 20250930
  Transmission Date: 20251021
  Serious: Yes (Death, Hospitalization)
  Sender: FRESENIUS KABI
  Company Number: None

PATIENT
  Age: 75 Year
  Sex: Male
  Weight: 76 kg

DRUGS (25)
  1. FLUCONAZOLE [Suspect]
     Active Substance: FLUCONAZOLE
     Indication: Peritonitis
     Route: 042
     Dates: start: 20240927, end: 20240927
  2. FLUCONAZOLE [Suspect]
     Active Substance: FLUCONAZOLE
     Route: 042
     Dates: start: 20240928, end: 20241001
  3. PIPERACILLIN SODIUM\TAZOBACTAM SODIUM [Suspect]
     Active Substance: PIPERACILLIN SODIUM\TAZOBACTAM SODIUM
     Indication: Peritonitis
     Dosage: 16G/4G PER DAY
     Route: 042
     Dates: start: 20240815, end: 20240827
  4. PIPERACILLIN SODIUM\TAZOBACTAM SODIUM [Suspect]
     Active Substance: PIPERACILLIN SODIUM\TAZOBACTAM SODIUM
     Dosage: 16G/4G PER DAY
     Route: 042
     Dates: start: 20240904, end: 20241001
  5. PIPERACILLIN SODIUM\TAZOBACTAM SODIUM [Suspect]
     Active Substance: PIPERACILLIN SODIUM\TAZOBACTAM SODIUM
     Dosage: 16G/4G PER DAY
     Route: 042
     Dates: start: 20241203, end: 20241210
  6. FLUCONAZOLE [Suspect]
     Active Substance: FLUCONAZOLE
     Indication: Peritonitis
     Route: 048
     Dates: end: 20241003
  7. LINEZOLID [Concomitant]
     Active Substance: LINEZOLID
     Indication: Peritonitis
     Route: 042
     Dates: start: 20240927, end: 20241002
  8. LINEZOLID [Concomitant]
     Active Substance: LINEZOLID
     Route: 048
     Dates: start: 20241002, end: 20241016
  9. KARDEGIC [Concomitant]
     Active Substance: ASPIRIN DL-LYSINE
     Indication: Cardiovascular event prophylaxis
     Route: 048
  10. AMLODIPINE ARROW 10 mg, tablet [Concomitant]
     Indication: Hypertension
     Route: 048
  11. BISOPROLOL FUMARATE [Concomitant]
     Active Substance: BISOPROLOL FUMARATE
     Indication: Hypertension
     Route: 048
  12. FLUCORTAC 50 micrograms, scored tablet [Concomitant]
     Indication: Adrenalectomy
     Route: 048
  13. HYDROCORTISONE ROUSSEL 10 mg, tablet [Concomitant]
     Indication: Product used for unknown indication
     Route: 048
  14. LEVOTHYROX 100 microgrammes, scored tablet [Concomitant]
     Indication: Thyroidectomy
     Route: 048
  15. PANTOPRAZOLE [Concomitant]
     Active Substance: PANTOPRAZOLE
     Indication: Gastrooesophageal reflux disease
     Route: 048
     Dates: end: 20240909
  16. PANTOPRAZOLE [Concomitant]
     Active Substance: PANTOPRAZOLE
     Route: 042
     Dates: start: 20240910
  17. POTASSIUM CHLORIDE [Concomitant]
     Active Substance: POTASSIUM CHLORIDE
     Indication: Mineral supplementation
     Route: 048
  18. SILODOSIN VIATRIS 4 mg, capsule [Concomitant]
     Indication: Benign prostatic hyperplasia
     Route: 048
  19. INSULIN ASPARTE SANOFI 100 units/ml, solution for injection in pre-fil [Concomitant]
     Indication: Insulin-requiring type 2 diabetes mellitus
     Dosage: DEPENDING ON BLOOD SUGAR
     Route: 058
  20. ABASAGLAR 100 units/ml, solution for injection in pre-filled pen [Concomitant]
     Indication: Insulin-requiring type 2 diabetes mellitus
     Route: 058
  21. LOVENOX [Concomitant]
     Active Substance: ENOXAPARIN SODIUM
     Indication: Cardiovascular event prophylaxis
     Route: 058
     Dates: start: 20240815, end: 20240827
  22. LOVENOX [Concomitant]
     Active Substance: ENOXAPARIN SODIUM
     Route: 058
     Dates: start: 20240828, end: 20240910
  23. LOVENOX [Concomitant]
     Active Substance: ENOXAPARIN SODIUM
     Route: 058
     Dates: start: 20240911, end: 20240912
  24. LOVENOX [Concomitant]
     Active Substance: ENOXAPARIN SODIUM
     Route: 058
     Dates: start: 20240913
  25. TRAMADOL HYDROCHLORIDE [Concomitant]
     Active Substance: TRAMADOL HYDROCHLORIDE
     Indication: Pain
     Route: 048

REACTIONS (1)
  - Hepatic cytolysis [Fatal]

NARRATIVE: CASE EVENT DATE: 20240929
